FAERS Safety Report 15700082 (Version 2)
Quarter: 2018Q4

REPORT INFORMATION
  Report Type: Report from Study
  Country: GB (occurrence: GB)
  Receive Date: 20181207
  Receipt Date: 20181226
  Transmission Date: 20190205
  Serious: Yes (Hospitalization)
  Sender: FDA-Public Use
  Company Number: GB-PFIZER INC-2018501233

PATIENT
  Age: 66 Year
  Sex: Female
  Weight: 60 kg

DRUGS (3)
  1. SRA737 [Suspect]
     Active Substance: INVESTIGATIONAL PRODUCT
     Indication: SMALL CELL LUNG CANCER
     Dosage: 500 MG, SINGLE
     Route: 048
     Dates: start: 20180925, end: 20180925
  2. SRA737 [Suspect]
     Active Substance: INVESTIGATIONAL PRODUCT
     Dosage: 500 MG, CYCLIC (ON DAYS 2, 3, 9, 10, 16, AND 17 OF EACH 28-DAY CYCLE)
     Route: 048
     Dates: start: 20181003, end: 20181115
  3. GEMCITABINE HYDROCHLORIDE. [Suspect]
     Active Substance: GEMCITABINE HYDROCHLORIDE
     Indication: SMALL CELL LUNG CANCER
     Dosage: 112.5 MG/M2, CYCLIC (QD ON DAYS 1,8 AND 15 OF EACH 28-DAY CYCLE)
     Route: 042
     Dates: start: 20181002, end: 20181113

REACTIONS (1)
  - Confusional state [Recovered/Resolved]

NARRATIVE: CASE EVENT DATE: 20181120
